FAERS Safety Report 16910069 (Version 1)
Quarter: 2019Q4

REPORT INFORMATION
  Report Type: Spontaneous
  Country: CA (occurrence: CA)
  Receive Date: 20191011
  Receipt Date: 20191011
  Transmission Date: 20200122
  Serious: Yes (Other)
  Sender: FDA-Public Use
  Company Number: CA-TEVA-2019-CA-1119150

PATIENT
  Age: 52 Year
  Sex: Male

DRUGS (5)
  1. VENLAFAXINE HYDROCHLORIDE. [Suspect]
     Active Substance: VENLAFAXINE HYDROCHLORIDE
     Indication: DEPRESSION
     Route: 065
  2. GLUTAMINE [Concomitant]
     Active Substance: GLUTAMINE
  3. D-ALPHA TOCOPHERYL ACETATE/DOCOSAHEXAENOIC ACID/EICOSAPENTAENOIC ACID [Concomitant]
     Route: 048
  4. L-LYSINE [LYSINE] [Concomitant]
     Route: 048
  5. PROBIOTIC [BIFIDOBACTERIUM BIFIDUM;BIFIDOBACTERIUM [Concomitant]
     Route: 048

REACTIONS (7)
  - Anorgasmia [Recovered/Resolved]
  - Ejaculation delayed [Recovered/Resolved]
  - Erectile dysfunction [Recovered/Resolved]
  - Dysuria [Recovered/Resolved]
  - Ejaculation failure [Recovered/Resolved]
  - Testicular oedema [Recovered/Resolved]
  - Back pain [Recovered/Resolved]
